FAERS Safety Report 24205406 (Version 1)
Quarter: 2024Q3

REPORT INFORMATION
  Report Type: Spontaneous
  Country: CN (occurrence: CN)
  Receive Date: 20240813
  Receipt Date: 20240813
  Transmission Date: 20241017
  Serious: Yes (Life-Threatening, Hospitalization)
  Sender: BAYER
  Company Number: CN-BAYER-2024A116419

PATIENT
  Age: 66 Year
  Sex: Female

DRUGS (1)
  1. GADOBUTROL [Suspect]
     Active Substance: GADOBUTROL
     Indication: Magnetic resonance imaging
     Dosage: UNK, ONCE
     Route: 042
     Dates: start: 20240804, end: 20240804

REACTIONS (5)
  - Discomfort [None]
  - Shock [None]
  - Hypotension [None]
  - Cardiac arrest [None]
  - Rib fracture [None]

NARRATIVE: CASE EVENT DATE: 20240804
